FAERS Safety Report 18256786 (Version 1)
Quarter: 2020Q3

REPORT INFORMATION
  Report Type: Spontaneous
  Country: US (occurrence: US)
  Receive Date: 20200910
  Receipt Date: 20200910
  Transmission Date: 20201103
  Serious: No
  Sender: FDA-Public Use
  Company Number: None

PATIENT
  Age: 92 Year
  Sex: Female
  Weight: 87.3 kg

DRUGS (8)
  1. WARFARIN 4MG [Concomitant]
     Active Substance: WARFARIN
  2. IRON [Concomitant]
     Active Substance: IRON
  3. IBRANCE [Suspect]
     Active Substance: PALBOCICLIB
     Indication: BREAST CANCER
     Dosage: ?          OTHER FREQUENCY:QD FOR 21/28 DAYS;?
     Route: 048
     Dates: start: 20200715
  4. CLINDAMYCIN 300MG [Concomitant]
     Active Substance: CLINDAMYCIN PHOSPHATE
  5. DILTIAZEM 180MG [Concomitant]
  6. LETROZOLE. [Suspect]
     Active Substance: LETROZOLE
     Indication: BREAST CANCER
     Route: 048
     Dates: start: 20200305
  7. GLIMEPIRIDE 1MG [Concomitant]
     Active Substance: GLIMEPIRIDE
  8. VITAMIN B12 [Concomitant]
     Active Substance: CYANOCOBALAMIN

REACTIONS (1)
  - Pruritus [None]

NARRATIVE: CASE EVENT DATE: 20200910
